FAERS Safety Report 9555746 (Version 1)
Quarter: 2013Q3

REPORT INFORMATION
  Report Type: Spontaneous
  Country: JP (occurrence: JP)
  Receive Date: 20130926
  Receipt Date: 20130926
  Transmission Date: 20140515
  Serious: Yes (Hospitalization)
  Sender: FDA-Public Use
  Company Number: PHHY2013JP104064

PATIENT
  Age: 33 Year
  Sex: Male

DRUGS (8)
  1. IDARUBICIN [Suspect]
     Indication: ACUTE MYELOID LEUKAEMIA
  2. IDARUBICIN [Suspect]
     Indication: MYELODYSPLASTIC SYNDROME
  3. CYTARABINE [Suspect]
     Indication: ACUTE MYELOID LEUKAEMIA
     Dosage: 3 G,/M2
  4. CYTARABINE [Suspect]
     Indication: MYELODYSPLASTIC SYNDROME
  5. CEFEPIME [Suspect]
  6. MEROPENEM [Suspect]
     Dosage: 1 G, Q8H
  7. VANCOMYCIN [Suspect]
     Dosage: 1 G, Q12H
  8. VANCOMYCIN [Suspect]
     Dosage: 1 G, Q8H

REACTIONS (13)
  - Intraocular haematoma [Unknown]
  - Blindness [Recovering/Resolving]
  - Endophthalmitis [Recovered/Resolved]
  - Eye pain [Unknown]
  - Nasal obstruction [Recovered/Resolved]
  - Streptococcal bacteraemia [Unknown]
  - Neutropenia [Unknown]
  - Epigastric discomfort [Recovered/Resolved]
  - Alpha haemolytic streptococcal infection [Unknown]
  - Rhinorrhoea [Recovered/Resolved]
  - Pyrexia [Recovered/Resolved]
  - Drug resistance [Unknown]
  - Drug level below therapeutic [Unknown]
